FAERS Safety Report 5663624-X (Version None)
Quarter: 2008Q1

REPORT INFORMATION
  Report Type: 
  Country: None (occurrence: None)
  Receive Date: 20080307
  Receipt Date: 20080225
  Transmission Date: 20080703
  Serious: Yes (Life-Threatening, Hospitalization)
  Sender: FDA-Public Use
  Company Number: DSU-2008-00279

PATIENT
  Age: 85 Year
  Sex: Male

DRUGS (2)
  1. ALMETEC (OLMESARTAN MEDOXOMIL) (40 MILLIGRAM, TABLET) (OLMESARTAN MEDO [Suspect]
     Indication: ESSENTIAL HYPERTENSION
     Dosage: 40 MG (40 MG, 1 IN 1 D), PER ORAL
     Route: 048
  2. ESOMEPRAZOLE (ESOMEPRAZOLE) [Concomitant]

REACTIONS (1)
  - POLYMYOSITIS [None]
